FAERS Safety Report 5071950-0 (Version None)
Quarter: 2006Q3

REPORT INFORMATION
  Report Type: 
  Country: None (occurrence: None)
  Receive Date: 20060804
  Receipt Date: 20060726
  Transmission Date: 20061208
  Serious: Yes (Death, Hospitalization, Other)
  Sender: FDA-Public Use
  Company Number: US-ABBOTT-06P-163-0338939-00

PATIENT
  Sex: Female

DRUGS (1)
  1. HUMIRA [Suspect]
     Indication: RHEUMATOID ARTHRITIS
     Route: 058

REACTIONS (12)
  - AORTIC ANEURYSM [None]
  - ATRIAL FIBRILLATION [None]
  - BACTERIAL SEPSIS [None]
  - BLOOD POTASSIUM INCREASED [None]
  - CARDIAC FAILURE CONGESTIVE [None]
  - CARDIOPULMONARY FAILURE [None]
  - ILEUS [None]
  - MUSCULAR WEAKNESS [None]
  - PARALYSIS [None]
  - RALES [None]
  - RESPIRATORY FAILURE [None]
  - WEIGHT INCREASED [None]
